FAERS Safety Report 22342407 (Version 1)
Quarter: 2023Q2

REPORT INFORMATION
  Report Type: Other
  Country: US (occurrence: US)
  Receive Date: 20230519
  Receipt Date: 20230519
  Transmission Date: 20230721
  Serious: Yes (Hospitalization, Other)
  Sender: FDA-Public Use
  Company Number: US-Bion-011591

PATIENT
  Age: 64 Year
  Sex: Female

DRUGS (3)
  1. CALCITRIOL [Suspect]
     Active Substance: CALCITRIOL
     Indication: Hypoparathyroidism
     Dosage: 0.25 MCG/0.5 AND INCREASED TO 0.5 MCG/0.5 DAY
  2. CALCIUM CITRATE [Concomitant]
     Active Substance: CALCIUM CITRATE
     Indication: Hypoparathyroidism
  3. CALCIFEDIOL [Concomitant]
     Active Substance: CALCIFEDIOL
     Indication: Hypoparathyroidism

REACTIONS (1)
  - Milk-alkali syndrome [Recovered/Resolved]
